FAERS Safety Report 12512330 (Version 1)
Quarter: 2016Q2

REPORT INFORMATION
  Report Type: Spontaneous
  Country: US (occurrence: None)
  Receive Date: 20160629
  Receipt Date: 20160629
  Transmission Date: 20160815
  Serious: Yes (Other)
  Sender: FDA-Public Use
  Company Number: None

PATIENT
  Age: 58 Year
  Sex: Male
  Weight: 89.36 kg

DRUGS (3)
  1. LEVAQUIN [Suspect]
     Active Substance: LEVOFLOXACIN
     Indication: PROPHYLAXIS
     Route: 048
     Dates: start: 20160428, end: 20160505
  2. LEVAQUIN [Suspect]
     Active Substance: LEVOFLOXACIN
     Indication: POSTOPERATIVE CARE
     Route: 048
     Dates: start: 20160428, end: 20160505
  3. LEVAQUIN [Suspect]
     Active Substance: LEVOFLOXACIN
     Indication: TRANSURETHRAL INCISION OF PROSTATE
     Route: 048
     Dates: start: 20160428, end: 20160505

REACTIONS (2)
  - Back pain [None]
  - Tendonitis [None]

NARRATIVE: CASE EVENT DATE: 20160503
